FAERS Safety Report 8915632 (Version 1)
Quarter: 2012Q4

REPORT INFORMATION
  Report Type: 
  Country: AU (occurrence: AU)
  Receive Date: 20121119
  Receipt Date: 20121119
  Transmission Date: 20130627
  Serious: Yes (Hospitalization, Other)
  Sender: FDA-Public Use
  Company Number: AU-ROXANE LABORATORIES, INC.-2012-RO-02397RO

PATIENT
  Age: 69 Year
  Sex: Female

DRUGS (5)
  1. LEVETIRACETAM [Suspect]
     Indication: TEMPORAL LOBE EPILEPSY
     Dosage: 1000 mg
  2. CEFTRIAXONE [Suspect]
     Indication: URINARY TRACT INFECTION
     Route: 042
  3. SODIUM VALPROATE [Suspect]
     Indication: TEMPORAL LOBE EPILEPSY
     Dosage: 1000 mg
  4. ACYCLOVIR [Suspect]
     Indication: HERPES SIMPLEX
     Dosage: 250 mg
     Route: 042
  5. GAMMAGLOBULIN [Suspect]
     Indication: HYPOGAMMAGLOBULINAEMIA
     Dosage: 24 g
     Route: 042

REACTIONS (12)
  - Granuloma [Recovered/Resolved]
  - Tubulointerstitial nephritis [Recovered/Resolved]
  - Nephropathy toxic [Recovered/Resolved]
  - Renal failure acute [Recovered/Resolved]
  - Stomatitis [Unknown]
  - Urinary tract infection [Unknown]
  - Fluid overload [Unknown]
  - Azotaemia [Unknown]
  - Metabolic acidosis [Recovered/Resolved]
  - Herpes simplex [Unknown]
  - Hypogammaglobulinaemia [Unknown]
  - Delirium [Unknown]
